FAERS Safety Report 6767874-0 (Version None)
Quarter: 2010Q2

REPORT INFORMATION
  Report Type: 
  Country: None (occurrence: None)
  Receive Date: 20100610
  Receipt Date: 20100603
  Transmission Date: 20101027
  Serious: Yes (Hospitalization)
  Sender: FDA-Public Use
  Company Number: 013307

PATIENT
  Sex: Male
  Weight: 92.5 kg

DRUGS (13)
  1. CERTOLIZUMAB PEFOL (CDP870) [Suspect]
     Indication: RHEUMATOID ARTHRITIS
     Dosage: 200 MG 1X/2 WEEKS, CDP870-050 SUBCUTANEOUS), 400 MG  1X2 WEEKS SUBCUTANEOUS), 200 MG 1X2 WEEKS SUB
     Route: 058
     Dates: start: 20051214, end: 20060404
  2. CERTOLIZUMAB PEFOL (CDP870) [Suspect]
     Indication: RHEUMATOID ARTHRITIS
     Dosage: 200 MG 1X/2 WEEKS, CDP870-050 SUBCUTANEOUS), 400 MG  1X2 WEEKS SUBCUTANEOUS), 200 MG 1X2 WEEKS SUB
     Route: 058
     Dates: start: 20060405, end: 20071212
  3. CERTOLIZUMAB PEFOL (CDP870) [Suspect]
     Indication: RHEUMATOID ARTHRITIS
     Dosage: 200 MG 1X/2 WEEKS, CDP870-050 SUBCUTANEOUS), 400 MG  1X2 WEEKS SUBCUTANEOUS), 200 MG 1X2 WEEKS SUB
     Route: 058
     Dates: start: 20071226, end: 20100525
  4. METHOTREXATE [Concomitant]
  5. NIMESULIDE [Concomitant]
  6. PREDNISOLONE [Concomitant]
  7. INDOMETHACIN [Concomitant]
  8. ACIDUM FOLICUM [Concomitant]
  9. DOXYCLINE ARROW [Concomitant]
  10. DIAZOLIN [Concomitant]
  11. AKTIFERRIN [Concomitant]
  12. ISONIAZID [Concomitant]
  13. ACETAMINOPHEN [Concomitant]

REACTIONS (4)
  - ANAEMIA [None]
  - BORRELIA INFECTION [None]
  - PNEUMONIA [None]
  - RESPIRATORY TRACT INFECTION [None]
